FAERS Safety Report 4380950-5 (Version None)
Quarter: 2004Q2

REPORT INFORMATION
  Report Type: 
  Country: None (occurrence: None)
  Receive Date: 20040618
  Receipt Date: 20020319
  Transmission Date: 20050107
  Serious: Yes (Hospitalization, Other)
  Sender: FDA-Public Use
  Company Number: US-MERCK-0203USA02024

PATIENT
  Age: 71 Year
  Sex: Male
  Weight: 91 kg

DRUGS (9)
  1. TYLENOL [Concomitant]
     Route: 065
     Dates: start: 19981002
  2. VICODIN [Concomitant]
     Route: 065
  3. CELEXA [Concomitant]
     Route: 065
     Dates: start: 19980427, end: 20030509
  4. PLAVIX [Concomitant]
     Indication: MYOCARDIAL INFARCTION
     Route: 065
     Dates: start: 19981002, end: 19991002
  5. FLEXERIL [Concomitant]
     Route: 048
  6. AVAPRO [Concomitant]
     Route: 065
     Dates: start: 19981002, end: 20030509
  7. ATIVAN [Concomitant]
     Route: 065
     Dates: start: 19981002, end: 20020606
  8. NIACIN [Concomitant]
     Route: 065
     Dates: start: 19981002, end: 20031005
  9. VIOXX [Suspect]
     Indication: ARTHRITIS
     Route: 048
     Dates: end: 20010323

REACTIONS (14)
  - ANGIOPATHY [None]
  - ARTERIAL DISORDER [None]
  - CIRCULATORY COLLAPSE [None]
  - CORONARY ARTERY DISEASE [None]
  - DYSPNOEA EXERTIONAL [None]
  - EMOTIONAL DISTRESS [None]
  - FEMUR FRACTURE [None]
  - GASTROINTESTINAL DISORDER [None]
  - HYPERTENSION [None]
  - INJURY [None]
  - ISCHAEMIA [None]
  - MIGRAINE [None]
  - MYOCARDIAL INFARCTION [None]
  - STRESS SYMPTOMS [None]
